FAERS Safety Report 4994262-X (Version None)
Quarter: 2006Q2

REPORT INFORMATION
  Report Type: 
  Country: None (occurrence: None)
  Receive Date: 20060503
  Receipt Date: 20060425
  Transmission Date: 20061013
  Serious: Yes (Death)
  Sender: FDA-Public Use
  Company Number: GBR-2006-0002245

PATIENT
  Age: 73 Year
  Sex: Female

DRUGS (2)
  1. OXYCONTIN CR [Suspect]
     Dosage: 20 MG, BID, ORAL
     Route: 048
     Dates: start: 20040710
  2. OXYNORM  (OXYCODONE HYDROCHLORIDE) IR [Suspect]
     Dosage: 10 MG, TID,
     Dates: start: 20040710

REACTIONS (1)
  - DEATH [None]
